FAERS Safety Report 8833568 (Version 3)
Quarter: 2014Q3

REPORT INFORMATION
  Report Type: Report from Study
  Country: US (occurrence: US)
  Receive Date: 20121010
  Receipt Date: 20140904
  Transmission Date: 20150326
  Serious: Yes (Other)
  Sender: FDA-Public Use
  Company Number: US-ROCHE-1131945

PATIENT
  Sex: Female

DRUGS (11)
  1. TYLENOL [Concomitant]
     Active Substance: ACETAMINOPHEN
     Dosage: 250 CC NORMAL SALINE
     Route: 048
  2. BENADRYL [Concomitant]
     Active Substance: DIPHENHYDRAMINE HYDROCHLORIDE
     Dosage: IN 500 CC NORMAL SALINE
     Route: 065
  3. RITUXAN [Suspect]
     Active Substance: RITUXIMAB
     Indication: NON-HODGKIN^S LYMPHOMA
     Dosage: ADDITIONAL COURSES ADMINISTERED ON 26/DEC/2001, 16/JAN/2002, 15/FEB/2002 AND 08/MAR/2002.
     Route: 042
     Dates: start: 200111, end: 200205
  4. RITUXAN [Suspect]
     Active Substance: RITUXIMAB
     Indication: DIFFUSE LARGE B-CELL LYMPHOMA
     Dosage: VIAL SIZE 100 MG.
     Route: 042
  5. CYCLOPHOSPHAMIDE. [Concomitant]
     Active Substance: CYCLOPHOSPHAMIDE
     Indication: DIFFUSE LARGE B-CELL LYMPHOMA
  6. VINCRISTINE [Concomitant]
     Active Substance: VINCRISTINE
  7. CYCLOPHOSPHAMIDE. [Concomitant]
     Active Substance: CYCLOPHOSPHAMIDE
     Indication: DIFFUSE LARGE B-CELL LYMPHOMA
  8. DOXORUBICIN HYDROCHLORIDE. [Concomitant]
     Active Substance: DOXORUBICIN HYDROCHLORIDE
  9. PREDNISONE. [Concomitant]
     Active Substance: PREDNISONE
  10. VICODIN [Concomitant]
     Active Substance: ACETAMINOPHEN\HYDROCODONE BITARTRATE
     Route: 048
  11. ZYPREXA [Concomitant]
     Active Substance: OLANZAPINE
     Route: 048

REACTIONS (22)
  - Constipation [Unknown]
  - Fatigue [Unknown]
  - Infection [Unknown]
  - Pain [Unknown]
  - Alopecia [Unknown]
  - Peripheral swelling [Unknown]
  - Cough [Unknown]
  - Swelling face [Unknown]
  - Disease progression [Unknown]
  - Thrombosis [Unknown]
  - Nausea [Recovered/Resolved]
  - Dyspnoea [Unknown]
  - Depression [Unknown]
  - Stomatitis [Unknown]
  - Tooth abscess [Unknown]
  - Orthopnoea [Unknown]
  - Skin exfoliation [Unknown]
  - Dry skin [Unknown]
  - Oedema peripheral [Unknown]
  - Lymph node fibrosis [Unknown]
  - Deep vein thrombosis [Unknown]
  - Dizziness [Unknown]

NARRATIVE: CASE EVENT DATE: 2002
